FAERS Safety Report 25265131 (Version 4)
Quarter: 2025Q4

REPORT INFORMATION
  Report Type: Report from Study
  Country: US (occurrence: US)
  Receive Date: 20250502
  Receipt Date: 20251003
  Transmission Date: 20260118
  Serious: Yes (Hospitalization, Other)
  Sender: TAKEDA
  Company Number: US-TAKEDA-2025TUS040948

PATIENT
  Age: 44 Year
  Sex: Female

DRUGS (3)
  1. LANADELUMAB [Suspect]
     Active Substance: LANADELUMAB
     Indication: Hereditary angioedema
     Dosage: 300 MILLIGRAM
  2. LANADELUMAB [Suspect]
     Active Substance: LANADELUMAB
     Dosage: 300 MILLIGRAM
  3. LANADELUMAB [Suspect]
     Active Substance: LANADELUMAB

REACTIONS (8)
  - Mental disorder [Unknown]
  - Postural orthostatic tachycardia syndrome [Recovered/Resolved]
  - Hernia perforation [Unknown]
  - Hereditary angioedema [Not Recovered/Not Resolved]
  - Intestinal obstruction [Unknown]
  - Large intestine perforation [Unknown]
  - Product storage error [Unknown]
  - Product availability issue [Unknown]

NARRATIVE: CASE EVENT DATE: 20250409
